FAERS Safety Report 12112893 (Version 5)
Quarter: 2016Q3

REPORT INFORMATION
  Report Type: Spontaneous
  Country: US (occurrence: US)
  Receive Date: 20160225
  Receipt Date: 20160913
  Transmission Date: 20161109
  Serious: Yes (Hospitalization, Other)
  Sender: FDA-Public Use
  Company Number: US-CELGENEUS-USA-2015101702

PATIENT
  Age: 76 Year
  Sex: Female
  Weight: 85.35 kg

DRUGS (19)
  1. POMALYST [Suspect]
     Active Substance: POMALIDOMIDE
     Indication: PLASMA CELL MYELOMA
     Route: 048
     Dates: start: 201110
  2. VELCADE [Concomitant]
     Active Substance: BORTEZOMIB
     Route: 065
     Dates: start: 20081208, end: 200904
  3. DECADRON [Concomitant]
     Active Substance: DEXAMETHASONE
     Indication: PRODUCT USED FOR UNKNOWN INDICATION
     Route: 065
     Dates: start: 20081208, end: 200904
  4. DENOSUMAB [Concomitant]
     Active Substance: DENOSUMAB
     Indication: PRODUCT USED FOR UNKNOWN INDICATION
     Dosage: 10 MILLIGRAM
     Route: 065
     Dates: start: 20150515
  5. VELCADE [Concomitant]
     Active Substance: BORTEZOMIB
     Dosage: 800 MILLIGRAM
     Route: 058
     Dates: start: 20120425, end: 20130717
  6. DECADRON [Concomitant]
     Active Substance: DEXAMETHASONE
     Route: 065
     Dates: start: 201110
  7. DECADRON [Concomitant]
     Active Substance: DEXAMETHASONE
     Dosage: 1 TABLET
     Route: 065
     Dates: start: 20120425, end: 20130717
  8. DECADRON [Concomitant]
     Active Substance: DEXAMETHASONE
     Route: 065
     Dates: start: 20140514, end: 20141210
  9. OXYCODONE [Concomitant]
     Active Substance: OXYCODONE
     Indication: CANCER PAIN
     Route: 065
  10. VELCADE [Concomitant]
     Active Substance: BORTEZOMIB
     Indication: PRODUCT USED FOR UNKNOWN INDICATION
     Route: 065
     Dates: start: 20080718
  11. ACYCLOVIR. [Concomitant]
     Active Substance: ACYCLOVIR
     Indication: PRODUCT USED FOR UNKNOWN INDICATION
     Route: 065
  12. CYTOXAN [Concomitant]
     Active Substance: CYCLOPHOSPHAMIDE
     Indication: PRODUCT USED FOR UNKNOWN INDICATION
     Route: 065
     Dates: start: 20140514, end: 20141210
  13. POMALYST [Suspect]
     Active Substance: POMALIDOMIDE
     Route: 048
     Dates: start: 20141223
  14. POMALYST [Suspect]
     Active Substance: POMALIDOMIDE
     Route: 048
     Dates: start: 201412
  15. POMALYST [Suspect]
     Active Substance: POMALIDOMIDE
     Route: 048
     Dates: start: 20150522, end: 20151223
  16. BACTRIM [Concomitant]
     Active Substance: SULFAMETHOXAZOLE\TRIMETHOPRIM
     Indication: PROPHYLAXIS
     Route: 048
  17. POMALYST [Suspect]
     Active Substance: POMALIDOMIDE
     Dosage: 2 IU (INTERNATIONAL UNIT)
     Route: 048
     Dates: start: 201601
  18. VELCADE [Concomitant]
     Active Substance: BORTEZOMIB
     Dosage: 300 MILLIGRAM
     Route: 058
     Dates: start: 20140514, end: 20141210
  19. DECADRON [Concomitant]
     Active Substance: DEXAMETHASONE
     Route: 065
     Dates: start: 20090330

REACTIONS (10)
  - Hypercalcaemia [Unknown]
  - White blood cell count decreased [Recovered/Resolved]
  - Anaemia [Unknown]
  - Pancytopenia [Unknown]
  - Hypokalaemia [Unknown]
  - Back pain [Unknown]
  - Neutropenia [Not Recovered/Not Resolved]
  - Acute kidney injury [Unknown]
  - Fall [Unknown]
  - Dizziness [Unknown]

NARRATIVE: CASE EVENT DATE: 20130123
